FAERS Safety Report 5397274-X (Version None)
Quarter: 2007Q3

REPORT INFORMATION
  Report Type: 
  Country: None (occurrence: None)
  Receive Date: 20070723
  Receipt Date: 20070710
  Transmission Date: 20080115
  Serious: Yes (Hospitalization)
  Sender: FDA-Public Use
  Company Number: VNL_00596_2007

PATIENT
  Sex: Male

DRUGS (9)
  1. APO-GO (APO-GO SOLUTION FOR INJECTION - APOMORPHINE HYDROCHLORIDE) (NO [Suspect]
     Indication: PARKINSON'S DISEASE
     Dosage: (SUBCUTANEOUS), (4.5 MG PER HOUR FOR UNKNOWN SUBCUTANEOUS)
     Route: 058
     Dates: start: 20070501, end: 20070528
  2. APO-GO (APO-GO SOLUTION FOR INJECTION - APOMORPHINE HYDROCHLORIDE) (NO [Suspect]
     Indication: PARKINSON'S DISEASE
     Dosage: (SUBCUTANEOUS), (4.5 MG PER HOUR FOR UNKNOWN SUBCUTANEOUS)
     Route: 058
     Dates: start: 20070528
  3. APO-GO (APO-GO SOLUTION FOR INJECTION - APOMORPHINE HYDROCHLORIDE) (NO [Suspect]
     Indication: PARKINSON'S DISEASE
     Dosage: (1 MG PER HOUR FOR UNKNOWN SUBCUTANEOUS)
     Route: 058
     Dates: start: 20070515
  4. MADOPAR 62.5 [Concomitant]
  5. MADOPAR DEPOT (CO-BENELDOPA 100/25 MG) [Concomitant]
  6. MADOPAR LT (CO-BENELDOPA 100/25 MG) [Concomitant]
  7. CIPRALEX /01588501/ [Concomitant]
  8. LIMPTAR N [Concomitant]
  9. QUETIAPINE FUMARATE [Concomitant]

REACTIONS (5)
  - CONDITION AGGRAVATED [None]
  - HALLUCINATION [None]
  - MENTAL DISORDER [None]
  - NERVOUS SYSTEM DISORDER [None]
  - PSYCHOTIC DISORDER [None]
